FAERS Safety Report 9320713 (Version 4)
Quarter: 2013Q3

REPORT INFORMATION
  Report Type: Spontaneous
  Country: US (occurrence: US)
  Receive Date: 20130531
  Receipt Date: 20130813
  Transmission Date: 20140515
  Serious: No
  Sender: FDA-Public Use
  Company Number: US-BIOGENIDEC-2013BI047721

PATIENT
  Age: 54 Year
  Sex: Male

DRUGS (4)
  1. TYSABRI [Suspect]
     Indication: MULTIPLE SCLEROSIS
     Route: 042
     Dates: start: 20120321
  2. AVONEX [Concomitant]
     Indication: MULTIPLE SCLEROSIS
     Route: 030
  3. AVONEX [Concomitant]
     Indication: MULTIPLE SCLEROSIS
     Route: 030
     Dates: start: 20101022
  4. GABAPENTIN [Concomitant]
     Indication: PRODUCT USED FOR UNKNOWN INDICATION
     Route: 048
     Dates: start: 20130513

REACTIONS (16)
  - Visual impairment [Unknown]
  - Cognitive disorder [Not Recovered/Not Resolved]
  - Central nervous system lesion [Unknown]
  - Platelet count abnormal [Unknown]
  - White blood cell count abnormal [Unknown]
  - Blood potassium abnormal [Unknown]
  - General symptom [Unknown]
  - Asthenia [Unknown]
  - Dysarthria [Unknown]
  - Pain in extremity [Unknown]
  - Coordination abnormal [Unknown]
  - Gait disturbance [Not Recovered/Not Resolved]
  - Chills [Recovered/Resolved]
  - Headache [Recovered/Resolved]
  - Drug ineffective [Unknown]
  - Speech disorder [Not Recovered/Not Resolved]
